FAERS Safety Report 11203815 (Version 1)
Quarter: 2015Q2

REPORT INFORMATION
  Report Type: Report from Study
  Country: US (occurrence: US)
  Receive Date: 20150619
  Receipt Date: 20150619
  Transmission Date: 20150821
  Serious: Yes (Disabling)
  Sender: FDA-Public Use
  Company Number: US-INTERMUNE, INC.-201506IM018397

PATIENT
  Age: 79 Year
  Sex: Male

DRUGS (1)
  1. ESBRIET [Suspect]
     Active Substance: PIRFENIDONE
     Indication: PULMONARY HYPERTENSION
     Dosage: 801 MG
     Route: 048
     Dates: start: 20150227, end: 2015

REACTIONS (2)
  - Weight decreased [Unknown]
  - Gastrointestinal disorder [Unknown]
